FAERS Safety Report 14496607 (Version 12)
Quarter: 2025Q3

REPORT INFORMATION
  Report Type: Spontaneous
  Country: EU (occurrence: EU)
  Receive Date: 20180207
  Receipt Date: 20250804
  Transmission Date: 20251020
  Serious: Yes (Hospitalization, Other)
  Sender: AUROBINDO
  Company Number: EU-AUROBINDO-AUR-APL-2018-001211

PATIENT
  Age: 81 Year
  Sex: Female

DRUGS (23)
  1. CARVEDILOL [Suspect]
     Active Substance: CARVEDILOL
     Indication: Product used for unknown indication
     Route: 065
  2. CARVEDILOL [Suspect]
     Active Substance: CARVEDILOL
     Route: 065
  3. PANTOPRAZOLE [Suspect]
     Active Substance: PANTOPRAZOLE
     Indication: Product used for unknown indication
     Route: 065
  4. FUROSEMIDE [Suspect]
     Active Substance: FUROSEMIDE
     Indication: Product used for unknown indication
     Route: 065
  5. RIVAROXABAN [Suspect]
     Active Substance: RIVAROXABAN
     Indication: Product used for unknown indication
     Route: 065
  6. CIPROFLOXACIN [Suspect]
     Active Substance: CIPROFLOXACIN
     Indication: Product used for unknown indication
     Dosage: 400 MILLIGRAM, ONCE A DAY
     Route: 042
  7. CIPROFLOXACIN [Suspect]
     Active Substance: CIPROFLOXACIN
     Dosage: 800 MILLIGRAM, ONCE A DAY
     Route: 042
  8. CIPROFLOXACIN [Suspect]
     Active Substance: CIPROFLOXACIN
     Dosage: 400 MILLIGRAM, TWO TIMES A DAY
     Route: 042
  9. CIPROFLOXACIN [Suspect]
     Active Substance: CIPROFLOXACIN
     Route: 042
  10. LEVOTHYROXINE [Suspect]
     Active Substance: LEVOTHYROXINE
     Indication: Product used for unknown indication
     Route: 065
  11. LEVOTHYROXINE [Suspect]
     Active Substance: LEVOTHYROXINE
     Dosage: 0.03 MILLIGRAM, ONCE A DAY
     Route: 065
  12. LEVOTHYROXINE [Suspect]
     Active Substance: LEVOTHYROXINE
     Route: 065
  13. NADROPARIN [Suspect]
     Active Substance: NADROPARIN
     Indication: Product used for unknown indication
     Route: 065
  14. HEPARIN [Suspect]
     Active Substance: HEPARIN SODIUM
     Indication: Product used for unknown indication
     Route: 065
  15. HEPARIN [Suspect]
     Active Substance: HEPARIN SODIUM
     Route: 065
  16. PREDNISONE [Suspect]
     Active Substance: PREDNISONE
     Indication: Product used for unknown indication
     Route: 065
  17. PREDNISONE [Suspect]
     Active Substance: PREDNISONE
     Route: 065
  18. PREDNISONE [Suspect]
     Active Substance: PREDNISONE
     Route: 065
  19. AMIODARONE [Suspect]
     Active Substance: AMIODARONE
     Indication: Atrial fibrillation
     Dosage: 200 MG,QD(5 DAYS PER WEEK)
     Route: 065
     Dates: start: 201303, end: 2016
  20. AMIODARONE [Suspect]
     Active Substance: AMIODARONE
     Indication: Cardiac failure chronic
  21. HEPARIN CALCIUM [Suspect]
     Active Substance: HEPARIN CALCIUM
     Indication: Product used for unknown indication
     Route: 065
  22. CALCIUM [Concomitant]
     Active Substance: CALCIUM
     Indication: Product used for unknown indication
     Route: 065
  23. VITAMIN D [Concomitant]
     Active Substance: VITAMIN D NOS
     Indication: Product used for unknown indication
     Route: 065

REACTIONS (14)
  - Atrial fibrillation [Unknown]
  - Ventricular arrhythmia [Unknown]
  - Palpitations [Recovered/Resolved]
  - Oliguria [Recovering/Resolving]
  - Oedema peripheral [Unknown]
  - Pneumonia [Recovered/Resolved]
  - Diarrhoea [Recovering/Resolving]
  - Pulmonary toxicity [Recovered/Resolved]
  - Dyspnoea [Recovered/Resolved]
  - Fatigue [Recovered/Resolved]
  - Exercise tolerance decreased [Recovered/Resolved]
  - Cough [Recovered/Resolved]
  - Interstitial lung disease [Recovered/Resolved]
  - Dyspnoea exertional [Recovered/Resolved]

NARRATIVE: CASE EVENT DATE: 20160101
